FAERS Safety Report 12997750 (Version 4)
Quarter: 2017Q1

REPORT INFORMATION
  Report Type: Spontaneous
  Country: JP (occurrence: JP)
  Receive Date: 20161205
  Receipt Date: 20170113
  Transmission Date: 20170428
  Serious: Yes (Hospitalization)
  Sender: FDA-Public Use
  Company Number: JP-BRACCO-010720

PATIENT
  Age: 66 Year
  Sex: Female
  Weight: 51 kg

DRUGS (6)
  1. PENTAZOCINE [Concomitant]
     Active Substance: PENTAZOCINE
     Dates: start: 20161025
  2. IOPAMIRON [Suspect]
     Active Substance: IOPAMIDOL
     Indication: CATHETERISATION CARDIAC
     Dosage: 100 ML, ONCE, 2.5-3.0 ML/SEC INTO THE CORONARY ARTERY; INTRAVENOUS
     Route: 042
     Dates: start: 20161024, end: 20161024
  3. PREDNISOLONE. [Concomitant]
     Active Substance: PREDNISOLONE
     Dates: start: 20161024, end: 20161025
  4. DEXCHLORPHENIRAMINE MALEATE. [Concomitant]
     Active Substance: DEXCHLORPHENIRAMINE MALEATE
     Dates: start: 20161024, end: 20161024
  5. HYDROXYZINE HYDROCHLORIDE. [Concomitant]
     Active Substance: HYDROXYZINE HYDROCHLORIDE
     Dates: start: 20161025
  6. CORTICOSTEROIDS [Concomitant]
     Active Substance: CORTICOSTEROID NOS
     Dates: start: 20161024, end: 20161024

REACTIONS (1)
  - Anaphylactic shock [Recovering/Resolving]

NARRATIVE: CASE EVENT DATE: 20161025
